FAERS Safety Report 13440235 (Version 1)
Quarter: 2017Q2

REPORT INFORMATION
  Report Type: Spontaneous
  Country: US (occurrence: US)
  Receive Date: 20170413
  Receipt Date: 20170413
  Transmission Date: 20170830
  Serious: No
  Sender: FDA-Public Use
  Company Number: US-ENDO PHARMACEUTICALS INC-2016SCPR015443

PATIENT

DRUGS (3)
  1. HYDROXYUREA. [Suspect]
     Active Substance: HYDROXYUREA
     Dosage: 3 CAPSULES EVERY FRIDAY - SUNDAY AND 2 CAPSULES EVERY MONDAY - THURSDAY
     Route: 048
     Dates: start: 201604, end: 20160525
  2. HYDROXYUREA. [Suspect]
     Active Substance: HYDROXYUREA
     Indication: ESSENTIAL THROMBOCYTHAEMIA
     Dosage: 1 DF, OD
     Route: 048
     Dates: start: 201601, end: 201604
  3. ARMOUR THYROID [Concomitant]
     Active Substance: THYROID, PORCINE
     Indication: HYPOTHYROIDISM
     Dosage: 1 DF, OD
     Route: 048

REACTIONS (15)
  - Mean cell haemoglobin increased [Unknown]
  - Blood urea increased [Unknown]
  - Blood creatinine decreased [Unknown]
  - Chills [Recovered/Resolved]
  - Product use in unapproved indication [Unknown]
  - Condition aggravated [Recovered/Resolved]
  - Red cell distribution width increased [Unknown]
  - Mean cell volume increased [Unknown]
  - Myalgia [Recovered/Resolved]
  - Full blood count increased [Unknown]
  - Blood potassium increased [Unknown]
  - Red blood cell count decreased [Unknown]
  - Bone pain [Recovered/Resolved]
  - Metabolic function test abnormal [Unknown]
  - Abdominal discomfort [Recovered/Resolved]

NARRATIVE: CASE EVENT DATE: 201601
